FAERS Safety Report 16221474 (Version 1)
Quarter: 2019Q2

REPORT INFORMATION
  Report Type: Spontaneous
  Country: IT (occurrence: IT)
  Receive Date: 20190422
  Receipt Date: 20190422
  Transmission Date: 20190711
  Serious: Yes (Hospitalization)
  Sender: FDA-Public Use
  Company Number: IT-SA-2019SA102680

PATIENT
  Age: 84 Year
  Sex: Female

DRUGS (5)
  1. CARDICOR [Concomitant]
     Active Substance: BISOPROLOL
  2. TORVAST [Concomitant]
     Active Substance: ATORVASTATIN
  3. PLAVIX [Suspect]
     Active Substance: CLOPIDOGREL BISULFATE
     Indication: THROMBOSIS PROPHYLAXIS
     Dosage: 75 MG, QD
     Route: 048
     Dates: start: 20050101
  4. APROVEL [Concomitant]
     Active Substance: IRBESARTAN
  5. TRENTAL [Concomitant]
     Active Substance: PENTOXIFYLLINE

REACTIONS (3)
  - Anaemia [Recovering/Resolving]
  - Asthenia [Recovering/Resolving]
  - Melaena [Recovering/Resolving]

NARRATIVE: CASE EVENT DATE: 20190103
